FAERS Safety Report 19066777 (Version 1)
Quarter: 2021Q1

REPORT INFORMATION
  Report Type: Spontaneous
  Country: US (occurrence: US)
  Receive Date: 20210329
  Receipt Date: 20210329
  Transmission Date: 20210420
  Serious: No
  Sender: FDA-Public Use
  Company Number: US-ORGANON-O2103USA001525

PATIENT
  Age: 54 Year
  Sex: Female

DRUGS (7)
  1. ASMANEX [Suspect]
     Active Substance: MOMETASONE FUROATE
     Indication: ASTHMA
     Dosage: UNK
     Route: 048
  2. ASMANEX [Suspect]
     Active Substance: MOMETASONE FUROATE
     Indication: ASTHMA
     Dosage: UNK
     Route: 048
  3. ASMANEX [Suspect]
     Active Substance: MOMETASONE FUROATE
     Dosage: DOUBLED THE DOSE
     Route: 048
     Dates: start: 20210222
  4. ASMANEX [Suspect]
     Active Substance: MOMETASONE FUROATE
     Indication: ASTHMA
     Dosage: UNK
     Route: 048
  5. ASMANEX [Suspect]
     Active Substance: MOMETASONE FUROATE
     Dosage: DOUBLED THE DOSE
     Route: 048
     Dates: start: 20210222
  6. ASMANEX [Suspect]
     Active Substance: MOMETASONE FUROATE
     Dosage: DOUBLED THE DOSE
     Route: 048
     Dates: start: 20210222
  7. PROAIR HFA [Concomitant]
     Active Substance: ALBUTEROL SULFATE
     Dosage: UNK

REACTIONS (5)
  - Dyspnoea [Not Recovered/Not Resolved]
  - Device malfunction [Unknown]
  - Coronavirus infection [Unknown]
  - Poor quality device used [Unknown]
  - Product dose omission issue [Unknown]

NARRATIVE: CASE EVENT DATE: 20201202
